FAERS Safety Report 6113114-5 (Version None)
Quarter: 2009Q1

REPORT INFORMATION
  Report Type: 
  Country: None (occurrence: None)
  Receive Date: 20090312
  Receipt Date: 20090306
  Transmission Date: 20090719
  Serious: Yes (Hospitalization, Other)
  Sender: FDA-Public Use
  Company Number: PT-MERCK-0901PRT00004

PATIENT
  Age: 60 Year
  Sex: Female

DRUGS (1)
  1. VYTORIN [Suspect]
     Indication: DYSLIPIDAEMIA
     Route: 048

REACTIONS (6)
  - ANAEMIA [None]
  - FATIGUE [None]
  - MYALGIA [None]
  - PANCREATIC NEOPLASM [None]
  - PYREXIA [None]
  - TACHYCARDIA [None]
